FAERS Safety Report 12788767 (Version 2)
Quarter: 2016Q4

REPORT INFORMATION
  Report Type: Spontaneous
  Country: FR (occurrence: FR)
  Receive Date: 20160928
  Receipt Date: 20161024
  Transmission Date: 20170207
  Serious: Yes (Other)
  Sender: FDA-Public Use
  Company Number: FR-ABBVIE-16K-056-1734147-00

PATIENT
  Age: 47 Year
  Sex: Female

DRUGS (3)
  1. DUODOPA [Suspect]
     Active Substance: CARBIDOPA\LEVODOPA
     Route: 050
     Dates: start: 201508, end: 201606
  2. SINEMET [Concomitant]
     Active Substance: CARBIDOPA\LEVODOPA
     Indication: PRODUCT USED FOR UNKNOWN INDICATION
     Dates: start: 2015
  3. DUODOPA [Suspect]
     Active Substance: CARBIDOPA\LEVODOPA
     Indication: PARKINSON^S DISEASE
     Dosage: 10MG/H FROM 8 AM TO 11 PM
     Route: 050
     Dates: start: 201507, end: 201508

REACTIONS (8)
  - Pain [Not Recovered/Not Resolved]
  - Device issue [Recovered/Resolved]
  - Dyskinesia [Not Recovered/Not Resolved]
  - Device leakage [Unknown]
  - Device kink [Unknown]
  - Abdominal wall abscess [Recovered/Resolved]
  - Stoma site discharge [Unknown]
  - On and off phenomenon [Unknown]

NARRATIVE: CASE EVENT DATE: 201508
